FAERS Safety Report 12742618 (Version 2)
Quarter: 2016Q4

REPORT INFORMATION
  Report Type: Report from Study
  Country: US (occurrence: US)
  Receive Date: 20160914
  Receipt Date: 20161014
  Transmission Date: 20170207
  Serious: Yes (Hospitalization)
  Sender: FDA-Public Use
  Company Number: US-JNJFOC-20160911328

PATIENT
  Age: 68 Year
  Sex: Male

DRUGS (11)
  1. FINASTERIDE. [Concomitant]
     Active Substance: FINASTERIDE
  2. DILTIAZEM. [Concomitant]
     Active Substance: DILTIAZEM
  3. TAMSULOSIN [Concomitant]
     Active Substance: TAMSULOSIN
  4. IMBRUVICA [Suspect]
     Active Substance: IBRUTINIB
     Indication: CHRONIC LYMPHOCYTIC LEUKAEMIA
     Route: 048
     Dates: start: 20160217
  5. LISINOPRIL. [Concomitant]
     Active Substance: LISINOPRIL
  6. ACETAMINOPHEN. [Concomitant]
     Active Substance: ACETAMINOPHEN
  7. LEVOFLOXACIN. [Concomitant]
     Active Substance: LEVOFLOXACIN
  8. GLYBURIDE. [Concomitant]
     Active Substance: GLYBURIDE
  9. IMBRUVICA [Suspect]
     Active Substance: IBRUTINIB
     Indication: B-CELL SMALL LYMPHOCYTIC LYMPHOMA
     Route: 048
     Dates: start: 20160217
  10. RIVAROXABAN [Concomitant]
     Active Substance: RIVAROXABAN
  11. ONDANSETRON [Concomitant]
     Active Substance: ONDANSETRON

REACTIONS (9)
  - Myocardial infarction [Not Recovered/Not Resolved]
  - Diarrhoea [Recovering/Resolving]
  - Hyperuricaemia [Unknown]
  - Atrial fibrillation [Unknown]
  - Localised infection [Unknown]
  - Nausea [Unknown]
  - Neoplasm skin [Recovering/Resolving]
  - Blood creatinine increased [Unknown]
  - Dehydration [Unknown]

NARRATIVE: CASE EVENT DATE: 20160822
